FAERS Safety Report 24860128 (Version 1)
Quarter: 2025Q1

REPORT INFORMATION
  Report Type: Spontaneous
  Country: CN (occurrence: CN)
  Receive Date: 20250120
  Receipt Date: 20250120
  Transmission Date: 20250409
  Serious: Yes (Life-Threatening)
  Sender: PFIZER
  Company Number: CN-PFIZER INC-PV202500005947

PATIENT
  Age: 50 Year
  Sex: Male
  Weight: 69 kg

DRUGS (3)
  1. EPIRUBICIN HYDROCHLORIDE [Suspect]
     Active Substance: EPIRUBICIN HYDROCHLORIDE
     Indication: Hepatic cancer
     Dosage: 30 MG, 1X/DAY
     Dates: start: 20241225, end: 20241225
  2. OXALIPLATIN [Suspect]
     Active Substance: OXALIPLATIN
     Indication: Hepatic cancer
     Dosage: 150 MG, 1X/DAY
     Dates: start: 20241225, end: 20241225
  3. RALTITREXED [Suspect]
     Active Substance: RALTITREXED
     Indication: Hepatic cancer
     Dosage: 2 MG, 1X/DAY
     Dates: start: 20241225, end: 20241225

REACTIONS (3)
  - Agranulocytosis [Recovering/Resolving]
  - Myelosuppression [Recovering/Resolving]
  - Pyrexia [Recovering/Resolving]

NARRATIVE: CASE EVENT DATE: 20241226
